FAERS Safety Report 8801645 (Version 2)
Quarter: 2015Q1

REPORT INFORMATION
  Report Type: Report from Study
  Country: US (occurrence: US)
  Receive Date: 20120921
  Receipt Date: 20150304
  Transmission Date: 20150721
  Serious: Yes (Death)
  Sender: FDA-Public Use
  Company Number: US-ROCHE-1102253

PATIENT
  Sex: Female
  Weight: 60 kg

DRUGS (12)
  1. THALIDOMIDE [Concomitant]
     Active Substance: THALIDOMIDE
  2. MORPHINE [Concomitant]
     Active Substance: MORPHINE
  3. AVASTIN [Suspect]
     Active Substance: BEVACIZUMAB
     Indication: GRANULAR CELL TUMOUR
     Route: 042
  4. DIFLUCAN [Concomitant]
     Active Substance: FLUCONAZOLE
  5. TAXOL [Concomitant]
     Active Substance: PACLITAXEL
  6. DECADRON [Concomitant]
     Active Substance: DEXAMETHASONE
     Route: 042
  7. PEPCID [Concomitant]
     Active Substance: FAMOTIDINE
     Route: 042
  8. CARBOPLATIN. [Concomitant]
     Active Substance: CARBOPLATIN
  9. DOLASETRON [Concomitant]
     Active Substance: DOLASETRON
     Route: 065
  10. SENOKOT [Concomitant]
     Active Substance: SENNOSIDES
  11. XELODA [Suspect]
     Active Substance: CAPECITABINE
     Indication: GRANULAR CELL TUMOUR
     Route: 065
  12. BENADRYL [Concomitant]
     Active Substance: DIPHENHYDRAMINE HYDROCHLORIDE
     Route: 042

REACTIONS (14)
  - Pubic pain [Unknown]
  - Constipation [Unknown]
  - Metastases to lung [Unknown]
  - Death [Fatal]
  - Pain [Unknown]
  - Off label use [Unknown]
  - Cough [Unknown]
  - Dysuria [Unknown]
  - Fatigue [Unknown]
  - Dyspnoea [Unknown]
  - Neuropathy peripheral [Unknown]
  - Abdominal pain [Unknown]
  - Hepatic lesion [Unknown]
  - Muscle twitching [Unknown]
